FAERS Safety Report 7032379-9 (Version None)
Quarter: 2010Q4

REPORT INFORMATION
  Report Type: 
  Country: None (occurrence: None)
  Receive Date: 20101007
  Receipt Date: 20100729
  Transmission Date: 20110411
  Serious: Yes (Hospitalization)
  Sender: FDA-Public Use
  Company Number: DE-BRISTOL-MYERS SQUIBB COMPANY-15229388

PATIENT
  Age: 69 Year
  Sex: Male
  Weight: 48 kg

DRUGS (13)
  1. CETUXIMAB [Suspect]
     Indication: HEAD AND NECK CANCER
     Dosage: LOADING DOSE:400MG/M2(1D) 250MG/M2/WEEK:ONG; LAST DOSE ON:14JUL2010
     Route: 042
     Dates: start: 20100623
  2. CISPLATIN [Suspect]
     Indication: HEAD AND NECK CANCER
     Dosage: LAST DOSE ON:10JUL2010
     Route: 042
     Dates: start: 20100623
  3. ALIMTA [Suspect]
     Indication: HEAD AND NECK CANCER
     Dosage: LAST DOSE ON:14JUL2010
     Route: 042
     Dates: start: 20100623
  4. FOLIC ACID [Concomitant]
     Indication: PROPHYLAXIS
     Dates: start: 20100616
  5. DEXAMETHASONE [Concomitant]
     Indication: PROPHYLAXIS
     Dates: start: 20100622
  6. ASPIRIN [Concomitant]
  7. GASTROZEPIN [Concomitant]
  8. METOCLOPRAMIDE HCL [Concomitant]
     Dates: start: 20100624
  9. TRANSTEC [Concomitant]
     Indication: PAIN
  10. NOVALGIN [Concomitant]
     Indication: PAIN
  11. NEXIUM [Concomitant]
  12. KEVATRIL [Concomitant]
     Dates: start: 20100623
  13. VITAMIN B-12 [Concomitant]
     Indication: PROPHYLAXIS
     Dates: start: 20100621

REACTIONS (1)
  - ANAEMIA [None]
